FAERS Safety Report 24018026 (Version 4)
Quarter: 2024Q3

REPORT INFORMATION
  Report Type: Report from Study
  Country: PT (occurrence: PT)
  Receive Date: 20240627
  Receipt Date: 20240718
  Transmission Date: 20241016
  Serious: Yes (Other)
  Sender: ABBVIE
  Company Number: PT-ABBVIE-5815479

PATIENT
  Age: 79 Year
  Sex: Female

DRUGS (6)
  1. CARBIDOPA\LEVODOPA [Suspect]
     Active Substance: CARBIDOPA\LEVODOPA
     Indication: Parkinson^s disease
     Dosage: 20 MG + 5 MG, ?FREQUENCY TEXT: MORN:7CC;MAIN:UNK;EXTRA:3CC?FIRST ADMIN DATE: 2023
     Route: 050
     Dates: end: 202406
  2. CARBIDOPA\LEVODOPA [Suspect]
     Active Substance: CARBIDOPA\LEVODOPA
     Dosage: 20 MG + 5 MG,?FREQUENCY TEXT: MORN:11.8CC;MAIN:4.9CC/H;EXTRA:1CC?LAST ADMIN DATE: 2023
     Route: 050
     Dates: start: 20230130
  3. CARBIDOPA\LEVODOPA [Suspect]
     Active Substance: CARBIDOPA\LEVODOPA
     Dosage: 20 MG + 5 MG, FREQUENCY TEXT: MORN:7CC;MAIN:UNK;EXTRA:3.5CC
     Route: 050
     Dates: start: 202406
  4. ESCITALOPRAM [Concomitant]
     Active Substance: ESCITALOPRAM OXALATE
     Indication: Product used for unknown indication
     Dosage: 0.5 TABLET,?FORM STRENGTH: 10 MILLIGRAM,?FREQUENCY TEXT: IN THE MORNING,?START DATE TEXT: BEFORE ...
     Route: 048
  5. BENSERAZIDE HYDROCHLORIDE\LEVODOPA [Concomitant]
     Active Substance: BENSERAZIDE HYDROCHLORIDE\LEVODOPA
     Indication: Parkinson^s disease
     Dosage: 2 TABLET,?FREQUENCY TEXT: AT BEDTIME,?START DATE TEXT: BEFORE DUODOPA
     Route: 048
     Dates: end: 202406
  6. OPICAPONE [Suspect]
     Active Substance: OPICAPONE
     Indication: Parkinson^s disease
     Dosage: 1 TABLET,?FORM STRENGTH: 50 MILLIGRAM,?FREQUENCY TEXT: AT NIGHT
     Route: 048
     Dates: start: 202406, end: 202406

REACTIONS (4)
  - Skin laceration [Recovered/Resolved]
  - Freezing phenomenon [Recovered/Resolved]
  - Fall [Recovered/Resolved]
  - Dyskinesia [Recovering/Resolving]

NARRATIVE: CASE EVENT DATE: 20240601
